FAERS Safety Report 25493845 (Version 1)
Quarter: 2025Q2

REPORT INFORMATION
  Report Type: Spontaneous
  Country: US (occurrence: US)
  Receive Date: 20250630
  Receipt Date: 20250630
  Transmission Date: 20250717
  Serious: No
  Sender: ELI LILLY AND COMPANY
  Company Number: US-ELI_LILLY_AND_COMPANY-US202506024976

PATIENT
  Age: 65 Year
  Sex: Female

DRUGS (3)
  1. LYUMJEV [Suspect]
     Active Substance: INSULIN LISPRO-AABC
     Indication: Type 1 diabetes mellitus
     Route: 065
  2. LIPITOR [Concomitant]
     Active Substance: ATORVASTATIN CALCIUM
     Indication: Product used for unknown indication
     Route: 065
  3. TRESIBA [Concomitant]
     Active Substance: INSULIN DEGLUDEC
     Indication: Product used for unknown indication
     Route: 065

REACTIONS (2)
  - Gamma-glutamyltransferase increased [Unknown]
  - Alanine aminotransferase increased [Unknown]

NARRATIVE: CASE EVENT DATE: 20250618
